FAERS Safety Report 19037471 (Version 1)
Quarter: 2021Q1

REPORT INFORMATION
  Report Type: Report from Study
  Country: US (occurrence: US)
  Receive Date: 20210322
  Receipt Date: 20210322
  Transmission Date: 20210420
  Serious: Yes (Hospitalization, Other)
  Sender: FDA-Public Use
  Company Number: US-AMGEN-USASL2019135512

PATIENT
  Age: 60 Year
  Sex: Female

DRUGS (3)
  1. ENBREL [Suspect]
     Active Substance: ETANERCEPT
     Dosage: UNK, 2 TIMES/WK
     Route: 065
     Dates: start: 2019, end: 2019
  2. RINVOQ [Suspect]
     Active Substance: UPADACITINIB
     Indication: PRODUCT USED FOR UNKNOWN INDICATION
     Dosage: UNK
     Route: 065
     Dates: start: 201901
  3. ENBREL [Suspect]
     Active Substance: ETANERCEPT
     Indication: RHEUMATOID ARTHRITIS
     Dosage: UNK UNK, 2 TIMES/WK
     Route: 065
     Dates: start: 199901, end: 2019

REACTIONS (12)
  - Lymph node pain [Not Recovered/Not Resolved]
  - Hyperhidrosis [Not Recovered/Not Resolved]
  - Knee arthroplasty [Unknown]
  - Ear infection [Recovering/Resolving]
  - Rheumatoid arthritis [Not Recovered/Not Resolved]
  - Hip arthroplasty [Unknown]
  - Alopecia [Unknown]
  - Tonsillar disorder [Unknown]
  - Drug ineffective [Unknown]
  - Sinusitis [Recovered/Resolved]
  - C-reactive protein increased [Unknown]
  - Palpitations [Recovered/Resolved]

NARRATIVE: CASE EVENT DATE: 200002
